FAERS Safety Report 7243426-3 (Version None)
Quarter: 2011Q1

REPORT INFORMATION
  Report Type: 
  Country: None (occurrence: None)
  Receive Date: 20110125
  Receipt Date: 20110112
  Transmission Date: 20110831
  Serious: Yes (Other)
  Sender: FDA-Public Use
  Company Number: US-ELI_LILLY_AND_COMPANY-US201101003596

PATIENT
  Age: 86 Year
  Sex: Male

DRUGS (2)
  1. PRILOSEC [Concomitant]
  2. EFFIENT [Suspect]
     Indication: STENT PLACEMENT
     Dosage: 10 MG, UNK
     Dates: start: 20110105

REACTIONS (11)
  - FATIGUE [None]
  - DYSURIA [None]
  - URINE OUTPUT DECREASED [None]
  - MALAISE [None]
  - ABDOMINAL PAIN [None]
  - OEDEMA PERIPHERAL [None]
  - INTESTINAL FUNCTIONAL DISORDER [None]
  - CONTUSION [None]
  - HYPERSOMNIA [None]
  - GAIT DISTURBANCE [None]
  - RENAL FAILURE [None]
